FAERS Safety Report 5916793-8 (Version None)
Quarter: 2008Q4

REPORT INFORMATION
  Report Type: 
  Country: None (occurrence: None)
  Receive Date: 20081013
  Receipt Date: 20081001
  Transmission Date: 20090506
  Serious: Yes (Other)
  Sender: FDA-Public Use
  Company Number: BR-PFIZER INC-2008078656

PATIENT
  Sex: Male
  Weight: 72 kg

DRUGS (2)
  1. ZYVOX [Suspect]
     Indication: OSTEOMYELITIS
     Route: 048
     Dates: start: 20080401
  2. BECOSYM FORTE [Concomitant]

REACTIONS (4)
  - BURNING SENSATION [None]
  - FORMICATION [None]
  - HYPOKINESIA [None]
  - PAIN IN EXTREMITY [None]
